FAERS Safety Report 12807120 (Version 1)
Quarter: 2016Q4

REPORT INFORMATION
  Report Type: Spontaneous
  Country: US (occurrence: US)
  Receive Date: 20161004
  Receipt Date: 20161004
  Transmission Date: 20170207
  Serious: No
  Sender: FDA-Public Use
  Company Number: US-JNJFOC-20160817622

PATIENT
  Sex: Male
  Weight: 97.98 kg

DRUGS (3)
  1. MENS ROGAINE [Suspect]
     Active Substance: MINOXIDIL
     Indication: ALOPECIA
     Route: 061
     Dates: start: 20160817
  2. MENS ROGAINE [Suspect]
     Active Substance: MINOXIDIL
     Indication: ALOPECIA
     Dosage: ENTIRE DROPPER, ONCE A DAY EVERY 2 TO 3 DAYS
     Route: 061
  3. FLOMAX [Concomitant]
     Active Substance: TAMSULOSIN HYDROCHLORIDE
     Indication: NOCTURIA
     Dosage: AS NEEDED, 2 YEARS
     Route: 065

REACTIONS (2)
  - Drug effect incomplete [Unknown]
  - Inappropriate schedule of drug administration [Unknown]
